APPROVED DRUG PRODUCT: IOPAMIDOL-370
Active Ingredient: IOPAMIDOL
Strength: 76%
Dosage Form/Route: INJECTABLE;INJECTION
Application: A075005 | Product #003
Applicant: HOSPIRA WORLDWIDE, INC
Approved: Feb 24, 1998 | RLD: No | RS: No | Type: DISCN